FAERS Safety Report 20859398 (Version 1)
Quarter: 2022Q2

REPORT INFORMATION
  Report Type: Spontaneous
  Country: JP (occurrence: JP)
  Receive Date: 20220523
  Receipt Date: 20220523
  Transmission Date: 20220721
  Serious: Yes (Hospitalization, Other)
  Sender: FDA-Public Use
  Company Number: JP-SUN PHARMACEUTICAL INDUSTRIES LTD-2021R1-311302

PATIENT
  Age: 11 Year
  Sex: Male
  Weight: 36 kg

DRUGS (1)
  1. MESALAMINE [Suspect]
     Active Substance: MESALAMINE
     Indication: Colitis ulcerative
     Dosage: 100 MILLIGRAM/KILOGRAM, DAILY
     Route: 065

REACTIONS (1)
  - Pulmonary toxicity [Recovered/Resolved]
